FAERS Safety Report 18765811 (Version 3)
Quarter: 2021Q3

REPORT INFORMATION
  Report Type: Spontaneous
  Country: US (occurrence: US)
  Receive Date: 20210121
  Receipt Date: 20210809
  Transmission Date: 20211014
  Serious: No
  Sender: FDA-Public Use
  Company Number: US-JNJFOC-20210123696

PATIENT
  Age: 75 Year
  Sex: Female
  Weight: 70.37 kg

DRUGS (5)
  1. DULCOLAX (BISACODYL) [Concomitant]
     Active Substance: BISACODYL
     Indication: FAECES SOFT
     Route: 065
  2. VITAMIN B12 [Concomitant]
     Active Substance: CYANOCOBALAMIN
     Route: 065
  3. XARELTO [Suspect]
     Active Substance: RIVAROXABAN
     Indication: ANTICOAGULANT THERAPY
     Dosage: 1 TO 20 MG
     Route: 048
     Dates: start: 202004
  4. DIPHENHYDRAMINE HYDROCHLORIDE. [Concomitant]
     Active Substance: DIPHENHYDRAMINE HYDROCHLORIDE
     Indication: NAUSEA
     Route: 065
     Dates: start: 202004
  5. XARELTO [Suspect]
     Active Substance: RIVAROXABAN
     Route: 048

REACTIONS (3)
  - Product container issue [Unknown]
  - Memory impairment [Unknown]
  - Product packaging quantity issue [Unknown]

NARRATIVE: CASE EVENT DATE: 202102
